FAERS Safety Report 15138117 (Version 2)
Quarter: 2019Q1

REPORT INFORMATION
  Report Type: Spontaneous
  Country: ES (occurrence: ES)
  Receive Date: 20180713
  Receipt Date: 20190331
  Transmission Date: 20190417
  Serious: Yes (Other)
  Sender: FDA-Public Use
  Company Number: ES-ALEXION PHARMACEUTICALS INC.-A201808781

PATIENT
  Age: 48 Year
  Sex: Male
  Weight: 85 kg

DRUGS (7)
  1. SOLIRIS [Suspect]
     Active Substance: ECULIZUMAB
     Dosage: 900 MG, Q2W
     Route: 042
  2. HIDROXIL B12 B6 B1 [Concomitant]
     Active Substance: HYDROXOCOBALAMIN\PYRIDOXINE HYDROCHLORIDE\THIAMINE HYDROCHLORIDE
     Indication: PRODUCT USED FOR UNKNOWN INDICATION
     Dosage: 1 DF, QD
     Route: 048
  3. IRON [Concomitant]
     Active Substance: IRON
     Indication: PRODUCT USED FOR UNKNOWN INDICATION
     Dosage: UNK
     Route: 065
  4. PREDNISONE. [Concomitant]
     Active Substance: PREDNISONE
     Indication: SECONDARY ADRENOCORTICAL INSUFFICIENCY
     Dosage: 5 MG, QD
     Route: 048
  5. SOLIRIS [Suspect]
     Active Substance: ECULIZUMAB
     Indication: PAROXYSMAL NOCTURNAL HAEMOGLOBINURIA
     Dosage: UNK, Q15 DAYS
     Route: 042
     Dates: start: 20100226
  6. ISOVORIN [Concomitant]
     Active Substance: LEUCOVORIN CALCIUM
     Indication: PRODUCT USED FOR UNKNOWN INDICATION
     Dosage: 1 DF, QD
     Route: 048
  7. FOLIC ACID. [Concomitant]
     Active Substance: FOLIC ACID
     Indication: PRODUCT USED FOR UNKNOWN INDICATION
     Dosage: UNK
     Route: 065

REACTIONS (4)
  - Gastroenteritis [Recovered/Resolved]
  - Secondary adrenocortical insufficiency [Recovered/Resolved]
  - Red cell fragmentation syndrome [Recovered/Resolved]
  - Haemolysis [Recovered/Resolved]

NARRATIVE: CASE EVENT DATE: 20180525
